FAERS Safety Report 6441518-X (Version None)
Quarter: 2009Q4

REPORT INFORMATION
  Report Type: 
  Country: None (occurrence: None)
  Receive Date: 20091112
  Receipt Date: 20091029
  Transmission Date: 20100525
  Serious: Yes (Other)
  Sender: FDA-Public Use
  Company Number: 232927K08USA

PATIENT
  Age: 26 Year
  Sex: Female
  Weight: 72 kg

DRUGS (5)
  1. REBIF [Suspect]
     Indication: MULTIPLE SCLEROSIS
     Dosage: 44 MCG, 3 IN 1 WEEKS, SUBCUTANEOUS
     Route: 058
     Dates: start: 20080925, end: 20081206
  2. KEPPRA [Concomitant]
  3. ZANAFLEX [Concomitant]
  4. PROZAC [Concomitant]
  5. HYDROCODONE (HYDROCODONE) [Concomitant]

REACTIONS (7)
  - ABNORMAL BEHAVIOUR [None]
  - CONDITION AGGRAVATED [None]
  - CONVULSION [None]
  - CYSTITIS [None]
  - DEHYDRATION [None]
  - MULTIPLE SCLEROSIS [None]
  - THINKING ABNORMAL [None]
